FAERS Safety Report 14357046 (Version 2)
Quarter: 2019Q1

REPORT INFORMATION
  Report Type: Spontaneous
  Country: HU (occurrence: HU)
  Receive Date: 20180105
  Receipt Date: 20190124
  Transmission Date: 20190417
  Serious: Yes (Hospitalization, Other)
  Sender: FDA-Public Use
  Company Number: HU-MYLANLABS-2018M1000776

PATIENT
  Age: 54 Year
  Sex: Male

DRUGS (5)
  1. NAPROXEN. [Interacting]
     Active Substance: NAPROXEN
     Indication: ARTHRITIS
  2. THIAZIDE [Concomitant]
     Active Substance: UNSPECIFIED INGREDIENT
     Indication: DIURETIC THERAPY
     Dosage: UNK
  3. PERINDOPRIL [Concomitant]
     Active Substance: PERINDOPRIL
     Indication: PRODUCT USED FOR UNKNOWN INDICATION
     Dosage: UNK
  4. NAPROXEN. [Suspect]
     Active Substance: NAPROXEN
     Indication: ANTIINFLAMMATORY THERAPY
     Dosage: 1100 MG, QD, 550 MG, BID
     Route: 048
  5. ASPIRIN                            /00002701/ [Interacting]
     Active Substance: ASPIRIN
     Indication: PRODUCT USED FOR UNKNOWN INDICATION
     Dosage: UNK
     Route: 048

REACTIONS (6)
  - Brain stem ischaemia [Recovered/Resolved]
  - Dizziness [Recovered/Resolved]
  - Central nervous system lesion [Recovered/Resolved]
  - Nausea [Recovered/Resolved]
  - Labelled drug-drug interaction medication error [Unknown]
  - Vestibular disorder [Recovered/Resolved]
